FAERS Safety Report 6583494-5 (Version None)
Quarter: 2010Q1

REPORT INFORMATION
  Report Type: 
  Country: None (occurrence: None)
  Receive Date: 20100216
  Receipt Date: 20100203
  Transmission Date: 20100710
  Serious: Yes (Hospitalization)
  Sender: FDA-Public Use
  Company Number: PHHY2010CH05662

PATIENT
  Age: 80 Year
  Sex: Female

DRUGS (2)
  1. LEPONEX [Suspect]
     Indication: PSYCHOMOTOR HYPERACTIVITY
     Dosage: 62.5 MG/DAY
     Dates: end: 20091119
  2. BUSPAR [Suspect]
     Indication: PSYCHOMOTOR HYPERACTIVITY
     Dosage: 10 MG/DAY
     Dates: end: 20091119

REACTIONS (2)
  - COMA [None]
  - DISORIENTATION [None]
